FAERS Safety Report 10112199 (Version 1)
Quarter: 2014Q2

REPORT INFORMATION
  Report Type: Spontaneous
  Country: US (occurrence: US)
  Receive Date: 20140425
  Receipt Date: 20140425
  Transmission Date: 20141212
  Serious: No
  Sender: FDA-Public Use
  Company Number: US-ASTRAZENECA-2014SE05828

PATIENT
  Sex: Female

DRUGS (2)
  1. PRILOSEC OTC [Suspect]
     Dosage: 1 TABLET, 1 /DAY AT 3PM
     Route: 048
     Dates: start: 20140122, end: 20140122
  2. PRILOSEC OTC [Suspect]
     Dosage: 1 TABLET, AT 10AM
     Route: 048
     Dates: start: 20140123, end: 20140123

REACTIONS (2)
  - Abdominal distension [Not Recovered/Not Resolved]
  - Inappropriate schedule of drug administration [Not Recovered/Not Resolved]
